FAERS Safety Report 20763435 (Version 4)
Quarter: 2023Q4

REPORT INFORMATION
  Report Type: Spontaneous
  Country: US (occurrence: US)
  Receive Date: 20220428
  Receipt Date: 20231115
  Transmission Date: 20240109
  Serious: No
  Sender: FDA-Public Use
  Company Number: US-PFIZER INC-202200505076

PATIENT
  Age: 67 Year
  Sex: Female

DRUGS (1)
  1. IBRANCE [Suspect]
     Active Substance: PALBOCICLIB
     Indication: Breast cancer female
     Dosage: 75 MG, CYCLIC (1 DAILY 21 OUT OF A 28 D, 28-DAY SUPPLY)
     Route: 048

REACTIONS (1)
  - Illness [Unknown]
